FAERS Safety Report 4737243-3 (Version None)
Quarter: 2005Q3

REPORT INFORMATION
  Report Type: 
  Country: None (occurrence: None)
  Receive Date: 20050728
  Receipt Date: 20050517
  Transmission Date: 20060218
  Serious: No
  Sender: FDA-Public Use
  Company Number: 200514259US

PATIENT
  Age: 41 Year
  Sex: Female

DRUGS (2)
  1. KETEK [Suspect]
     Indication: UPPER RESPIRATORY TRACT INFECTION
     Dosage: 800 MG ONCE PO
     Route: 048
     Dates: start: 20050516, end: 20050516
  2. MOTRIN [Concomitant]

REACTIONS (1)
  - VISION BLURRED [None]
